FAERS Safety Report 9673385 (Version 2)
Quarter: 2013Q4

REPORT INFORMATION
  Report Type: Spontaneous
  Country: US (occurrence: US)
  Receive Date: 20131106
  Receipt Date: 20131106
  Transmission Date: 20140711
  Serious: No
  Sender: FDA-Public Use
  Company Number: US-AMGEN-USASP2013069762

PATIENT
  Age: 61 Year
  Sex: Female

DRUGS (2)
  1. ENBREL [Suspect]
     Indication: RHEUMATOID ARTHRITIS
     Dosage: 50 MG, WEEKLY
     Route: 065
     Dates: start: 20130712, end: 201309
  2. METHOTREXATE [Concomitant]
     Dosage: 25 MG, WEEKLY, ON FOR ABOUT 1 YEAR

REACTIONS (2)
  - Nasopharyngitis [Recovering/Resolving]
  - Sinusitis [Not Recovered/Not Resolved]
